FAERS Safety Report 4630514-0 (Version None)
Quarter: 2005Q2

REPORT INFORMATION
  Report Type: 
  Country: None (occurrence: None)
  Receive Date: 20050408
  Receipt Date: 20020628
  Transmission Date: 20051028
  Serious: Yes (Other)
  Sender: FDA-Public Use
  Company Number: US-GLAXOSMITHKLINE-A0373124A

PATIENT
  Age: 73 Year
  Sex: Female

DRUGS (7)
  1. LAMICTAL [Suspect]
     Dosage: 150MG TWICE PER DAY
     Route: 048
  2. NEURONTIN [Concomitant]
     Indication: ILL-DEFINED DISORDER
     Dosage: 1200MG PER DAY
     Route: 065
  3. KLONOPIN [Concomitant]
     Indication: ILL-DEFINED DISORDER
     Route: 065
  4. PROCARDIA XL [Concomitant]
     Indication: ILL-DEFINED DISORDER
     Dosage: 30MG TWICE PER DAY
     Route: 065
  5. VITAMINS [Concomitant]
  6. COZAAR [Concomitant]
  7. HYDROCHLOROTHIAZIDE [Concomitant]

REACTIONS (16)
  - ANXIETY [None]
  - BLOOD ARSENIC INCREASED [None]
  - BLOOD HEAVY METAL INCREASED [None]
  - CATARACT [None]
  - DRY EYE [None]
  - DRY MOUTH [None]
  - DYSPHONIA [None]
  - ILL-DEFINED DISORDER [None]
  - MALAISE [None]
  - NERVOUSNESS [None]
  - OROPHARYNGEAL SPASM [None]
  - PRURITUS [None]
  - RASH [None]
  - RENAL IMPAIRMENT [None]
  - TARDIVE DYSKINESIA [None]
  - WEIGHT INCREASED [None]
